FAERS Safety Report 13478029 (Version 1)
Quarter: 2017Q2

REPORT INFORMATION
  Report Type: Spontaneous
  Country: US (occurrence: US)
  Receive Date: 20170425
  Receipt Date: 20170425
  Transmission Date: 20170830
  Serious: Yes (Disabling)
  Sender: FDA-Public Use
  Company Number: None

PATIENT
  Age: 23 Year
  Sex: Female
  Weight: 58.5 kg

DRUGS (1)
  1. ZYRTEC-D [Suspect]
     Active Substance: CETIRIZINE HYDROCHLORIDE\PSEUDOEPHEDRINE HYDROCHLORIDE
     Indication: SEASONAL ALLERGY
     Dosage: ?          QUANTITY:1 TABLET(S);?
     Route: 048
     Dates: end: 20170331

REACTIONS (23)
  - Loss of libido [None]
  - Autoimmune disorder [None]
  - Temperature intolerance [None]
  - Drug use disorder [None]
  - Decreased appetite [None]
  - Food allergy [None]
  - Histamine level decreased [None]
  - Withdrawal syndrome [None]
  - Alopecia [None]
  - Quality of life decreased [None]
  - Bedridden [None]
  - Depression [None]
  - Rash [None]
  - Anxiety [None]
  - Increased appetite [None]
  - Discomfort [None]
  - Insomnia [None]
  - Nightmare [None]
  - Abnormal behaviour [None]
  - Irritability [None]
  - Pruritus [None]
  - Mood altered [None]
  - Amnesia [None]

NARRATIVE: CASE EVENT DATE: 20170331
